FAERS Safety Report 5486670-8 (Version None)
Quarter: 2007Q4

REPORT INFORMATION
  Report Type: 
  Country: None (occurrence: None)
  Receive Date: 20071016
  Receipt Date: 20071002
  Transmission Date: 20080405
  Serious: Yes (Other)
  Sender: FDA-Public Use
  Company Number: TW-SOLVAY-00207034350

PATIENT
  Sex: Female

DRUGS (5)
  1. UTROGESTAN [Suspect]
     Indication: LUTEAL PHASE DEFICIENCY
     Dosage: DAILY DOSE: 600 MILLIGRAM(S)
     Route: 067
  2. BUSERELIN ACETATE [Suspect]
     Indication: IN VITRO FERTILISATION
     Dosage: DAILY DOSE: .5 MILLIGRAM(S)
     Route: 065
  3. BUSERELIN ACETATE [Suspect]
     Dosage: DAILY DOSE: .25 MILLIGRAM(S)
     Route: 065
  4. HUMAN MENOPAUSAL GONADOTROPIN (HMG) [Suspect]
     Indication: IN VITRO FERTILISATION
     Dosage: DAILY DOSE:  UNKNOWN
     Route: 065
  5. HUMAN CHORIONIC GONADOTROPIN (HCG) [Suspect]
     Indication: IN VITRO FERTILISATION
     Dosage: DAILY DOSE:  UNKNOWN
     Route: 065

REACTIONS (1)
  - OVARIAN HYPERSTIMULATION SYNDROME [None]
